FAERS Safety Report 11724235 (Version 2)
Quarter: 2015Q4

REPORT INFORMATION
  Report Type: Spontaneous
  Country: US (occurrence: US)
  Receive Date: 20151111
  Receipt Date: 20151117
  Transmission Date: 20160304
  Serious: No
  Sender: FDA-Public Use
  Company Number: US-PFIZER INC-2015382359

PATIENT
  Age: 53 Year
  Sex: Male

DRUGS (1)
  1. CELECOXIB. [Suspect]
     Active Substance: CELECOXIB
     Indication: BACK INJURY
     Dosage: 200 MG, UNK
     Route: 048

REACTIONS (1)
  - Drug ineffective [Not Recovered/Not Resolved]
